FAERS Safety Report 12323888 (Version 2)
Quarter: 2016Q2

REPORT INFORMATION
  Report Type: Spontaneous
  Country: DE (occurrence: DE)
  Receive Date: 20160502
  Receipt Date: 20160504
  Transmission Date: 20160815
  Serious: Yes (Hospitalization, Other)
  Sender: FDA-Public Use
  Company Number: DE-BAYER-2016-079446

PATIENT
  Age: 37 Year
  Sex: Female

DRUGS (2)
  1. MIRENA [Suspect]
     Active Substance: LEVONORGESTREL
     Indication: CONTRACEPTION
     Dosage: 20 MCG/24HR, CONT
     Route: 015
     Dates: start: 2012, end: 20151228
  2. MIRENA [Suspect]
     Active Substance: LEVONORGESTREL
     Indication: CONTRACEPTION
     Dosage: 20 MCG/24HR, CONT
     Route: 015
     Dates: start: 2005, end: 2012

REACTIONS (38)
  - Arthralgia [Recovering/Resolving]
  - Feeling cold [None]
  - Ovarian cyst [None]
  - Peripheral vascular disorder [None]
  - Groin pain [None]
  - Fluid retention [None]
  - Disturbance in attention [Recovered/Resolved]
  - Pain of skin [Recovered/Resolved]
  - Thrombosis [None]
  - Blood brain barrier defect [None]
  - Neck pain [None]
  - Headache [Recovering/Resolving]
  - Tinnitus [Not Recovered/Not Resolved]
  - Pollakiuria [Recovered/Resolved]
  - Memory impairment [Recovered/Resolved]
  - Toothache [Recovering/Resolving]
  - Nuclear magnetic resonance imaging brain abnormal [None]
  - Muscle tightness [None]
  - Sleep disorder [Not Recovered/Not Resolved]
  - Peripheral coldness [None]
  - Intervertebral disc operation [None]
  - Intra-abdominal haemorrhage [None]
  - Ocular discomfort [Not Recovered/Not Resolved]
  - Myalgia [Not Recovered/Not Resolved]
  - Ovarian cyst ruptured [None]
  - Back pain [None]
  - Fatigue [Not Recovered/Not Resolved]
  - Microsleep [Not Recovered/Not Resolved]
  - Hypoaesthesia [None]
  - Mood altered [Not Recovered/Not Resolved]
  - Musculoskeletal stiffness [None]
  - Abdominal pain lower [None]
  - Accommodation disorder [Not Recovered/Not Resolved]
  - Depressed mood [Not Recovered/Not Resolved]
  - Pain in extremity [None]
  - Torticollis [None]
  - Vision blurred [Not Recovered/Not Resolved]
  - Hypoacusis [Not Recovered/Not Resolved]

NARRATIVE: CASE EVENT DATE: 2012
